FAERS Safety Report 6274596-1 (Version None)
Quarter: 2009Q3

REPORT INFORMATION
  Report Type: 
  Country: None (occurrence: None)
  Receive Date: 20090716
  Receipt Date: 20090701
  Transmission Date: 20100115
  Serious: Yes (Hospitalization)
  Sender: FDA-Public Use
  Company Number: 8048486

PATIENT
  Age: 56 Year
  Sex: Female

DRUGS (1)
  1. CIMZIA [Suspect]
     Dosage: 400 MG / SC
     Route: 058
     Dates: start: 20081121

REACTIONS (8)
  - ABDOMINAL PAIN [None]
  - CONDITION AGGRAVATED [None]
  - CROHN'S DISEASE [None]
  - GASTROINTESTINAL SOUNDS ABNORMAL [None]
  - HAEMATOCHEZIA [None]
  - NAUSEA [None]
  - PAINFUL DEFAECATION [None]
  - VOMITING [None]
